FAERS Safety Report 4379912-3 (Version None)
Quarter: 2004Q2

REPORT INFORMATION
  Report Type: 
  Country: None (occurrence: None)
  Receive Date: 20040615
  Receipt Date: 20040607
  Transmission Date: 20050107
  Serious: Yes (Death, Hospitalization)
  Sender: FDA-Public Use
  Company Number: A-US2003-03936

PATIENT
  Age: 24 Year
  Sex: Female

DRUGS (5)
  1. TRACLEER [Suspect]
     Indication: PULMONARY HYPERTENSION
     Dosage: 62.5 + 125 MG, QD, ORAL
     Route: 048
     Dates: start: 20030623, end: 20030701
  2. TRACLEER [Suspect]
     Indication: PULMONARY HYPERTENSION
     Dosage: 62.5 + 125 MG, QD, ORAL
     Route: 048
     Dates: start: 20030701, end: 20030801
  3. TRACLEER [Suspect]
     Indication: PULMONARY HYPERTENSION
     Dosage: 62.5 + 125 MG, QD, ORAL
     Route: 048
     Dates: start: 20030824, end: 20030925
  4. COUMADIN [Concomitant]
  5. FLOLAN [Concomitant]

REACTIONS (2)
  - CARDIAC ARREST [None]
  - HEPATITIS [None]
